FAERS Safety Report 13688582 (Version 1)
Quarter: 2017Q2

REPORT INFORMATION
  Report Type: Spontaneous
  Country: US (occurrence: US)
  Receive Date: 20170623
  Receipt Date: 20170623
  Transmission Date: 20170830
  Serious: Yes (Hospitalization)
  Sender: FDA-Public Use
  Company Number: None

PATIENT
  Age: 61 Year
  Sex: Female
  Weight: 63.9 kg

DRUGS (8)
  1. POLYETHYLENE GLYCOL [Suspect]
     Active Substance: POLYETHYLENE GLYCOLS
     Indication: CONSTIPATION
     Dates: start: 20161111, end: 20170211
  2. ALPRAZOLAM. [Concomitant]
     Active Substance: ALPRAZOLAM
  3. DIETARY SUPPLEMENTS [Concomitant]
     Active Substance: DIETARY SUPPLEMENT
  4. POLYETHYLENE GLYCOL [Suspect]
     Active Substance: POLYETHYLENE GLYCOLS
     Indication: ABDOMINAL DISTENSION
     Dates: start: 20161111, end: 20170211
  5. METHYLPHENIDATE ER [Concomitant]
     Active Substance: METHYLPHENIDATE
  6. FUNCTIONAL GENERATOR (RISEF) [Concomitant]
  7. LEVOTHYROXXINE [Concomitant]
  8. DIGESTIVE SUPPLEMENTS [Concomitant]

REACTIONS (25)
  - Chest discomfort [None]
  - Drug ineffective [None]
  - Secretion discharge [None]
  - Tooth fracture [None]
  - Hepatic enzyme abnormal [None]
  - Blood sodium increased [None]
  - Ileus [None]
  - Feeling abnormal [None]
  - Abdominal pain [None]
  - Back pain [None]
  - Cough [None]
  - Visual impairment [None]
  - Weight decreased [None]
  - Staphylococcal infection [None]
  - Pain [None]
  - Angina pectoris [None]
  - Dizziness [None]
  - Hypoacusis [None]
  - Blood potassium decreased [None]
  - Alanine aminotransferase increased [None]
  - Fungal infection [None]
  - Dyspnoea [None]
  - Tooth disorder [None]
  - Bone pain [None]
  - Depression [None]

NARRATIVE: CASE EVENT DATE: 20161111
